FAERS Safety Report 13855395 (Version 1)
Quarter: 2017Q3

REPORT INFORMATION
  Report Type: Spontaneous
  Country: US (occurrence: US)
  Receive Date: 20170810
  Receipt Date: 20170810
  Transmission Date: 20171127
  Serious: No
  Sender: FDA-Public Use
  Company Number: US-VIFOR (INTERNATIONAL) INC.-VIT-2017-06599

PATIENT
  Sex: Male

DRUGS (27)
  1. ISONIAZID. [Concomitant]
     Active Substance: ISONIAZID
  2. ASCORBIC ACID. [Concomitant]
     Active Substance: ASCORBIC ACID
  3. FERROUS FUMARATE [Concomitant]
     Active Substance: FERROUS FUMARATE
  4. NO DRUG NAME [Concomitant]
  5. IRON [Concomitant]
     Active Substance: IRON
  6. ETHAMBUTOL DIHYDROCHLORIDE [Concomitant]
     Active Substance: ETHAMBUTOL HYDROCHLORIDE
  7. SODIUM BICARBONATE. [Concomitant]
     Active Substance: SODIUM BICARBONATE
  8. RIFAMPIN. [Concomitant]
     Active Substance: RIFAMPIN
  9. MIRALAX [Concomitant]
     Active Substance: POLYETHYLENE GLYCOL 3350
  10. CALCIUM 500+D3 [Concomitant]
  11. OMEPRAZOLE. [Concomitant]
     Active Substance: OMEPRAZOLE
  12. MOMETASONE FUROATE. [Concomitant]
     Active Substance: MOMETASONE FUROATE
  13. AMLODIPINE BESILATE [Concomitant]
     Active Substance: AMLODIPINE BESYLATE
  14. HYDROCHLOROTHIAZIDE. [Concomitant]
     Active Substance: HYDROCHLOROTHIAZIDE
  15. ALLERGY RELIEF [Concomitant]
  16. B-6 [Concomitant]
  17. ASPIRIN. [Concomitant]
     Active Substance: ASPIRIN
     Dosage: LOW DOSE
  18. VELTASSA [Suspect]
     Active Substance: PATIROMER
     Indication: HYPERKALAEMIA
     Route: 048
  19. HYDROXYCHLOROQUINE SULFATE. [Concomitant]
     Active Substance: HYDROXYCHLOROQUINE SULFATE
  20. HYDRALAZINE HYDROCHLORIDE. [Concomitant]
     Active Substance: HYDRALAZINE HYDROCHLORIDE
  21. PARACETAMOL [Concomitant]
     Active Substance: ACETAMINOPHEN
  22. PYRAZINAMIDE. [Concomitant]
     Active Substance: PYRAZINAMIDE
  23. FUROSEMIDE. [Concomitant]
     Active Substance: FUROSEMIDE
  24. CLONIDINE HYDROCHLORIDE. [Concomitant]
     Active Substance: CLONIDINE HYDROCHLORIDE
  25. SYSTANE (HYPROMELLOSE 2910 (4000 MPA.S)) [Concomitant]
     Active Substance: HYPROMELLOSE 2910 (4000 MPA.S)
  26. FENOFIBRATE. [Concomitant]
     Active Substance: FENOFIBRATE
  27. CLOBETASOL PROPIONATE. [Concomitant]
     Active Substance: CLOBETASOL PROPIONATE

REACTIONS (3)
  - Dizziness [Unknown]
  - Decreased appetite [Unknown]
  - Somnolence [Unknown]
